FAERS Safety Report 4317332-8 (Version None)
Quarter: 2004Q1

REPORT INFORMATION
  Report Type: 
  Country: None (occurrence: None)
  Receive Date: 20040315
  Receipt Date: 20040315
  Transmission Date: 20041129
  Serious: Yes (Death)
  Sender: FDA-Public Use
  Company Number: None

PATIENT
  Sex: Female
  Weight: 60 kg

DRUGS (4)
  1. CIPROFLOXACIN [Suspect]
     Indication: PNEUMONIA
     Dosage: 400 MG IV Q 24 H
     Route: 042
     Dates: start: 20031223, end: 20031229
  2. ZOSYN [Suspect]
     Indication: PNEUMONIA
     Dosage: 2.25 GM Q 6 H IV
     Route: 042
     Dates: start: 20031223, end: 20031231
  3. NAPROXEN [Concomitant]
  4. VANCOMYCIN HYDROCHLORIDE [Concomitant]

REACTIONS (4)
  - METABOLIC ACIDOSIS [None]
  - RENAL FAILURE ACUTE [None]
  - RESPIRATORY FAILURE [None]
  - TOXIC EPIDERMAL NECROLYSIS [None]
